FAERS Safety Report 19020056 (Version 2)
Quarter: 2021Q2

REPORT INFORMATION
  Report Type: Spontaneous
  Country: CA (occurrence: CA)
  Receive Date: 20210317
  Receipt Date: 20210412
  Transmission Date: 20210717
  Serious: Yes (Death, Hospitalization)
  Sender: FDA-Public Use
  Company Number: CA-MYLANLABS-2020M1096222

PATIENT
  Sex: Female

DRUGS (1)
  1. OGIVRI [Suspect]
     Active Substance: TRASTUZUMAB-DKST
     Indication: PRODUCT USED FOR UNKNOWN INDICATION
     Dosage: UNK, Q3W
     Route: 042
     Dates: start: 20201017

REACTIONS (3)
  - Malaise [Unknown]
  - Death [Fatal]
  - Pain [Unknown]
